FAERS Safety Report 6134909-8 (Version None)
Quarter: 2009Q1

REPORT INFORMATION
  Report Type: 
  Country: None (occurrence: None)
  Receive Date: 20090327
  Receipt Date: 20090316
  Transmission Date: 20090719
  Serious: Yes (Other)
  Sender: FDA-Public Use
  Company Number: US-PFIZER INC-2009158492

PATIENT
  Sex: Female
  Weight: 92.517 kg

DRUGS (1)
  1. SUTENT [Suspect]
     Indication: THYROID CANCER METASTATIC
     Dosage: .5 MG, 1X/DAY

REACTIONS (1)
  - POST PROCEDURAL HAEMORRHAGE [None]
